FAERS Safety Report 8383128-3 (Version None)
Quarter: 2012Q2

REPORT INFORMATION
  Report Type: 
  Country: None (occurrence: None)
  Receive Date: 20120522
  Receipt Date: 20120509
  Transmission Date: 20120825
  Serious: Yes (Hospitalization, Other)
  Sender: FDA-Public Use
  Company Number: AUR-APL-2009-00035

PATIENT
  Age: 64 Year
  Sex: Male

DRUGS (7)
  1. METFORMIN HCL [Suspect]
     Indication: PRODUCT USED FOR UNKNOWN INDICATION
     Dosage: 1000 MG (500 MG,2 IN 1 D),PER ORAL
     Route: 048
  2. GLYBURIDE [Concomitant]
  3. NITROGLYCERIN [Concomitant]
  4. TRAZODONE HCL [Concomitant]
  5. LOVASTATIN [Concomitant]
  6. LITHIUM CARBONATE [Concomitant]
  7. DILTIAZEM [Concomitant]

REACTIONS (3)
  - SPLENOMEGALY [None]
  - TOXICITY TO VARIOUS AGENTS [None]
  - HEPATITIS CHOLESTATIC [None]
